FAERS Safety Report 20452488 (Version 1)
Quarter: 2022Q1

REPORT INFORMATION
  Report Type: Spontaneous
  Country: US (occurrence: US)
  Receive Date: 20220210
  Receipt Date: 20220210
  Transmission Date: 20220423
  Serious: No
  Sender: FDA-Public Use
  Company Number: US-ELI_LILLY_AND_COMPANY-US202201004134

PATIENT
  Age: 47 Year
  Sex: Male

DRUGS (2)
  1. HUMALOG [Suspect]
     Active Substance: INSULIN LISPRO
     Indication: Type 1 diabetes mellitus
     Dosage: UNK UNK, (SLIDING SCALE) PRN
     Route: 058
  2. TRESIBA [Concomitant]
     Active Substance: INSULIN DEGLUDEC
     Indication: Type 1 diabetes mellitus
     Dosage: 20 U, UNKNOWN
     Route: 065

REACTIONS (8)
  - Blood glucose increased [Recovered/Resolved]
  - Hyperhidrosis [Unknown]
  - Eating disorder [Recovering/Resolving]
  - Blood glucose decreased [Recovered/Resolved]
  - Product storage error [Recovered/Resolved]
  - Device use issue [Unknown]
  - Accidental overdose [Recovered/Resolved]
  - Wrong technique in product usage process [Recovered/Resolved]

NARRATIVE: CASE EVENT DATE: 20220110
